FAERS Safety Report 8815922 (Version 2)
Quarter: 2015Q2

REPORT INFORMATION
  Report Type: Report from Study
  Country: US (occurrence: US)
  Receive Date: 20120928
  Receipt Date: 20150623
  Transmission Date: 20150821
  Serious: Yes (Death)
  Sender: FDA-Public Use
  Company Number: US-ROCHE-1129797

PATIENT
  Sex: Female

DRUGS (8)
  1. DECORTILEN [Concomitant]
  2. SYNTHROID [Concomitant]
     Active Substance: LEVOTHYROXINE SODIUM
     Route: 065
  3. HERCEPTIN [Suspect]
     Active Substance: TRASTUZUMAB
     Indication: BREAST CANCER FEMALE
     Dosage: LOADING DOSE
     Route: 042
     Dates: start: 20001218
  4. ALOXI [Concomitant]
     Active Substance: PALONOSETRON HYDROCHLORIDE
     Route: 042
  5. PREVACID [Concomitant]
     Active Substance: LANSOPRAZOLE
  6. HERCEPTIN [Suspect]
     Active Substance: TRASTUZUMAB
     Dosage: THE LAST DOSE WAS ON 30/NOV/2006
     Route: 042
  7. DECADRON [Concomitant]
     Active Substance: DEXAMETHASONE
     Route: 042
  8. HERCEPTIN [Suspect]
     Active Substance: TRASTUZUMAB
     Indication: METASTASES TO LIVER
     Dosage: MAINTAINANCE DOSE
     Route: 042

REACTIONS (9)
  - Cough [Unknown]
  - Death [Fatal]
  - Asthenia [Unknown]
  - Headache [Unknown]
  - Fall [Unknown]
  - Arthralgia [Unknown]
  - Fatigue [Unknown]
  - Joint instability [Unknown]
  - Visual impairment [Unknown]
